FAERS Safety Report 9216563 (Version 1)
Quarter: 2013Q2

REPORT INFORMATION
  Report Type: Spontaneous
  Country: DE (occurrence: DE)
  Receive Date: 20130408
  Receipt Date: 20130408
  Transmission Date: 20140414
  Serious: Yes (Life-Threatening, Hospitalization, Disabling, Other)
  Sender: FDA-Public Use
  Company Number: DE-ELI_LILLY_AND_COMPANY-DE201304000418

PATIENT
  Age: 69 Year
  Sex: Male

DRUGS (6)
  1. CIALIS [Suspect]
     Indication: ERECTILE DYSFUNCTION
     Dosage: 5 MG, QD
     Route: 048
  2. ALLOPURINOL [Concomitant]
     Dosage: UNK, QD
     Route: 048
  3. DIOVAN [Concomitant]
     Dosage: 160 MG, QD
     Route: 048
  4. NITRENDIPIN [Concomitant]
     Dosage: 10 MG, BID
     Route: 048
  5. VOLTAREN RESINAT [Concomitant]
     Dosage: 1 DF, PRN
     Route: 048
  6. PANTOZOL [Concomitant]
     Dosage: 40 MG, QD
     Route: 048

REACTIONS (2)
  - Carotid artery occlusion [Not Recovered/Not Resolved]
  - Cerebrovascular accident [Not Recovered/Not Resolved]
